FAERS Safety Report 5737855-4 (Version None)
Quarter: 2008Q2

REPORT INFORMATION
  Report Type: 
  Country: None (occurrence: None)
  Receive Date: 20080512
  Receipt Date: 20080512
  Transmission Date: 20081010
  Serious: Yes (Other)
  Sender: FDA-Public Use
  Company Number: None

PATIENT
  Sex: Male
  Weight: 105.2345 kg

DRUGS (2)
  1. CYMBALTA [Suspect]
     Indication: DEPRESSION
     Dosage: 60MG     1 PO Q D
     Route: 048
     Dates: start: 20070626
  2. CYMBALTA [Suspect]
     Indication: NEUROPATHY PERIPHERAL
     Dosage: 60MG     1 PO Q D
     Route: 048
     Dates: start: 20070626

REACTIONS (3)
  - ASTHENOPIA [None]
  - VISION BLURRED [None]
  - VISUAL DISTURBANCE [None]
